FAERS Safety Report 22662487 (Version 2)
Quarter: 2025Q4

REPORT INFORMATION
  Report Type: Spontaneous
  Country: EU (occurrence: EU)
  Receive Date: 20230701
  Receipt Date: 20251113
  Transmission Date: 20260118
  Serious: Yes (Hospitalization, Disabling)
  Sender: ACCORD
  Company Number: None

PATIENT
  Age: 59 Year
  Sex: Male
  Weight: 63.4 kg

DRUGS (22)
  1. FUROSEMIDE [Suspect]
     Active Substance: FUROSEMIDE
     Indication: Polyuria
     Dates: start: 20230405
  2. CEFEPIME [Suspect]
     Active Substance: CEFEPIME HYDROCHLORIDE
     Indication: Opportunistic infection prophylaxis
     Dates: start: 20230330, end: 20230405
  3. DAPTOMYCIN [Suspect]
     Active Substance: DAPTOMYCIN
     Indication: Antibiotic prophylaxis
     Dates: start: 20230405, end: 20230417
  4. CYCLOPHOSPHAMIDE [Suspect]
     Active Substance: CYCLOPHOSPHAMIDE
     Indication: Bone marrow conditioning regimen
     Dates: start: 20230401, end: 20230402
  5. MYCOPHENOLATE MOFETIL [Suspect]
     Active Substance: MYCOPHENOLATE MOFETIL
     Indication: Prophylaxis against transplant rejection
     Dates: start: 20230420, end: 20230503
  6. CYCLOSPORINE [Suspect]
     Active Substance: CYCLOSPORINE
     Indication: Prophylaxis against transplant rejection
     Dates: start: 20230329, end: 20230405
  7. AMIKACIN [Suspect]
     Active Substance: AMIKACIN
     Indication: Antibiotic prophylaxis
     Dates: start: 20230405, end: 20230405
  8. VALACYCLOVIR HYDROCHLORIDE [Suspect]
     Active Substance: VALACYCLOVIR HYDROCHLORIDE
     Indication: Opportunistic infection prophylaxis
     Dates: start: 20230421, end: 20230503
  9. DEFIBROTIDE [Suspect]
     Active Substance: DEFIBROTIDE (BOVINE)
     Indication: Venoocclusive liver disease
     Dosage: 80 MG/ML, CONCENTRATED SOLUTION FOR DILUTION FOR INFUSION
     Dates: start: 20230405, end: 20230503
  10. BACTRIM [Suspect]
     Active Substance: SULFAMETHOXAZOLE\TRIMETHOPRIM
     Indication: Opportunistic infection prophylaxis
     Dosage: 1 TABLET MONDAY-WEDNESDAY-FRIDAY
     Dates: start: 20230322, end: 20230404
  11. PIPERACILLIN AND TAZOBACTAM [Concomitant]
     Active Substance: PIPERACILLIN SODIUM\TAZOBACTAM SODIUM
     Indication: Antibiotic prophylaxis
     Dates: start: 20230406, end: 20230417
  12. POSACONAZOLE [Concomitant]
     Active Substance: POSACONAZOLE
     Indication: Opportunistic infection prophylaxis
     Dates: start: 20230412
  13. MELPHALAN [Concomitant]
     Active Substance: MELPHALAN
     Indication: Bone marrow conditioning regimen
     Dates: start: 20230327, end: 20230327
  14. METHYLPREDNISOLONE [Concomitant]
     Active Substance: METHYLPREDNISOLONE
     Indication: Prophylaxis against transplant rejection
     Dates: start: 20230405
  15. FLUDARABINE PHOSPHATE [Concomitant]
     Active Substance: FLUDARABINE PHOSPHATE
     Indication: Bone marrow conditioning regimen
     Dates: start: 20230325, end: 20230327
  16. RUXOLITINIB [Concomitant]
     Active Substance: RUXOLITINIB
     Indication: Myelofibrosis
     Dosage: 20MG TABLETS
     Dates: start: 20230322, end: 20230328
  17. PANTOPRAZOLE [Concomitant]
     Active Substance: PANTOPRAZOLE
     Indication: Prophylaxis against gastrointestinal ulcer
     Dates: start: 20230421
  18. ATORVASTATIN [Concomitant]
     Active Substance: ATORVASTATIN
     Indication: Dyslipidaemia
     Dates: end: 20230404
  19. BACTRIM [Suspect]
     Active Substance: SULFAMETHOXAZOLE\TRIMETHOPRIM
     Indication: Opportunistic infection prophylaxis
     Dosage: 1 TABLET MONDAY-WEDNESDAY-FRIDAY
     Dates: start: 20230421, end: 20230503
  20. CEFEPIME [Suspect]
     Active Substance: CEFEPIME HYDROCHLORIDE
     Indication: Opportunistic infection prophylaxis
     Dates: start: 20230420, end: 20230503
  21. MYCOPHENOLATE MOFETIL [Suspect]
     Active Substance: MYCOPHENOLATE MOFETIL
     Indication: Prophylaxis against transplant rejection
     Dates: start: 20230329, end: 20230403
  22. VALACYCLOVIR HYDROCHLORIDE [Suspect]
     Active Substance: VALACYCLOVIR HYDROCHLORIDE
     Indication: Opportunistic infection prophylaxis
     Dates: start: 20230322, end: 20230404

REACTIONS (1)
  - Acute kidney injury [Not Recovered/Not Resolved]

NARRATIVE: CASE EVENT DATE: 20230405
